FAERS Safety Report 8889343 (Version 1)
Quarter: 2012Q4

REPORT INFORMATION
  Report Type: Spontaneous
  Country: US (occurrence: None)
  Receive Date: 20121102
  Receipt Date: 20121102
  Transmission Date: 20130627
  Serious: Yes (Other)
  Sender: FDA-Public Use
  Company Number: None

PATIENT
  Sex: Female
  Weight: 81.65 kg

DRUGS (1)
  1. FENOFIBRATE [Suspect]
     Indication: CHOLESTEROL
     Dosage: 160 mg tablet  1 daily with meal  po
     Route: 048
     Dates: start: 20121004, end: 20121023

REACTIONS (5)
  - Pain [None]
  - Muscular weakness [None]
  - Palpitations [None]
  - Muscle spasms [None]
  - Headache [None]
